FAERS Safety Report 20379970 (Version 1)
Quarter: 2022Q1

REPORT INFORMATION
  Report Type: Spontaneous
  Country: US (occurrence: US)
  Receive Date: 20220126
  Receipt Date: 20220126
  Transmission Date: 20220423
  Serious: Yes (Death, Other)
  Sender: FDA-Public Use
  Company Number: US-Fresenius Medical Care Renal Therapies Group-FMC-2201-000159

PATIENT
  Age: 50 Year
  Sex: Male
  Weight: 69 kg

DRUGS (2)
  1. DELFLEX WITH DEXTROSE 1.5% LOW MAGNESIUM LOW CALCIUM [Suspect]
     Active Substance: CALCIUM CHLORIDE\DEXTROSE\MAGNESIUM CHLORIDE\SODIUM CHLORIDE\SODIUM LACTATE
     Indication: End stage renal disease
     Dosage: 2100 ML FOR 5 CYCLES WITH A LAST FILL OF 2000 ML AND A DAYTIME EXCHANGE OF 2000 ML, FOR APPROXIMATEL
     Route: 033
  2. DELFLEX WITH DEXTROSE 2.5% LOW MAGNESIUM LOW CALCIUM [Suspect]
     Active Substance: CALCIUM CHLORIDE\DEXTROSE\MAGNESIUM CHLORIDE\SODIUM CHLORIDE\SODIUM LACTATE
     Indication: End stage renal disease
     Dosage: 2100 ML FOR 5 CYCLES WITH A LAST FILL OF 2000 ML AND A DAYTIME EXCHANGE OF 2000 ML, FOR APPROXIMATEL
     Route: 033

REACTIONS (2)
  - Death [Fatal]
  - Seizure [Unknown]
